FAERS Safety Report 19071811 (Version 2)
Quarter: 2021Q4

REPORT INFORMATION
  Report Type: Report from Study
  Country: PR (occurrence: PR)
  Receive Date: 20210330
  Receipt Date: 20211103
  Transmission Date: 20220303
  Serious: Yes (Other)
  Sender: FDA-Public Use
  Company Number: PR-ABBVIE-21K-131-3721914-00

PATIENT
  Age: 67 Year
  Sex: Female
  Weight: 72.640 kg

DRUGS (3)
  1. HUMIRA [Suspect]
     Active Substance: ADALIMUMAB
     Indication: Psoriatic arthropathy
     Route: 058
     Dates: start: 20150504
  2. COVID-19 VACCINE [Concomitant]
     Indication: COVID-19 immunisation
     Dosage: MRNA VACCINE
     Route: 030
     Dates: start: 20210118, end: 20210118
  3. COVID-19 VACCINE [Concomitant]
     Route: 030
     Dates: start: 20210215, end: 20210215

REACTIONS (2)
  - Intervertebral disc protrusion [Not Recovered/Not Resolved]
  - Musculoskeletal disorder [Not Recovered/Not Resolved]

NARRATIVE: CASE EVENT DATE: 20201201
